FAERS Safety Report 7992769 (Version 4)
Quarter: 2013Q2

REPORT INFORMATION
  Report Type: Spontaneous
  Country: JP (occurrence: JP)
  Receive Date: 20110615
  Receipt Date: 20130503
  Transmission Date: 20140414
  Serious: Yes (Other)
  Sender: FDA-Public Use
  Company Number: JP-ASTRAZENECA-2011SE34773

PATIENT
  Age: 27723 Day
  Sex: Female
  Weight: 34 kg

DRUGS (3)
  1. DIPRIVAN [Suspect]
     Indication: INDUCTION AND MAINTENANCE OF ANAESTHESIA
     Route: 042
     Dates: start: 20110526, end: 20110526
  2. DIPRIVAN [Suspect]
     Indication: SEDATION
     Route: 042
     Dates: start: 20110526, end: 20110526
  3. SUXAMETHONIUM [Concomitant]
     Route: 042
     Dates: start: 20110526, end: 20110526

REACTIONS (3)
  - Hepatocellular injury [Recovered/Resolved]
  - Leukopenia [Recovered/Resolved]
  - Drug hypersensitivity [Unknown]
